FAERS Safety Report 8589072-0 (Version None)
Quarter: 2012Q3

REPORT INFORMATION
  Report Type: 
  Country: None (occurrence: None)
  Receive Date: 20120813
  Receipt Date: 20120801
  Transmission Date: 20120928
  Serious: Yes (Hospitalization, Other)
  Sender: FDA-Public Use
  Company Number: US-009507513-1204USA00039

PATIENT

DRUGS (7)
  1. FOSAMAX [Suspect]
     Route: 048
     Dates: start: 20010901, end: 20090301
  2. FOSAMAX [Suspect]
     Indication: OSTEOPOROSIS
     Dosage: 10 MG, QD
     Route: 048
     Dates: start: 20010706, end: 20011010
  3. FOSAMAX PLUS D [Suspect]
     Indication: OSTEOPOROSIS
     Dosage: 70 MG, QW
     Route: 048
     Dates: start: 20070512, end: 20080424
  4. FOSAMAX [Suspect]
     Dosage: 70 MG, QW
     Route: 048
     Dates: start: 20080425, end: 20090301
  5. CALCIUM (UNSPECIFIED) [Concomitant]
     Dosage: 600-1000
  6. FOSAMAX [Suspect]
     Dosage: 70 MG, QW
     Route: 048
     Dates: start: 20011011, end: 20070511
  7. MK-9278 [Concomitant]

REACTIONS (16)
  - FALL [None]
  - VERTIGO POSITIONAL [None]
  - DIZZINESS [None]
  - CAROTID ARTERY STENOSIS [None]
  - CONVULSION [None]
  - FEMUR FRACTURE [None]
  - BREAST CANCER IN SITU [None]
  - LOW TURNOVER OSTEOPATHY [None]
  - BLOOD CHOLESTEROL INCREASED [None]
  - CAROTID ARTERY DISEASE [None]
  - VAGINAL INFECTION [None]
  - CORONARY ARTERY OCCLUSION [None]
  - ARTHRALGIA [None]
  - KNEE ARTHROPLASTY [None]
  - HYPERTENSION [None]
  - BRAIN STEM INFARCTION [None]
